FAERS Safety Report 16237086 (Version 1)
Quarter: 2019Q2

REPORT INFORMATION
  Report Type: Spontaneous
  Country: DE (occurrence: DE)
  Receive Date: 20190425
  Receipt Date: 20190425
  Transmission Date: 20190711
  Serious: Yes (Other)
  Sender: FDA-Public Use
  Company Number: DE-009507513-1904DEU007221

PATIENT
  Age: 84 Year
  Sex: Female
  Weight: 59 kg

DRUGS (23)
  1. METOPROLOL SUCCINATE. [Suspect]
     Active Substance: METOPROLOL SUCCINATE
     Dosage: UNK UNK, UNK
     Route: 048
     Dates: start: 201504, end: 2015
  2. LENDORMIN [Suspect]
     Active Substance: BROTIZOLAM
     Dosage: UNK UNK, UNK
     Dates: start: 201211, end: 2017
  3. VALSARTAN. [Suspect]
     Active Substance: VALSARTAN
     Dosage: UNK
     Dates: start: 201610, end: 2018
  4. BISOPROLOL [Suspect]
     Active Substance: BISOPROLOL
     Dosage: UNK
     Dates: start: 201206, end: 2013
  5. BISOPROLOL [Suspect]
     Active Substance: BISOPROLOL
     Dosage: UNK
     Dates: start: 201203
  6. NITROLINGUAL [Suspect]
     Active Substance: NITROGLYCERIN
     Dosage: UNK
     Dates: start: 201503, end: 2015
  7. VALSARTAN. [Suspect]
     Active Substance: VALSARTAN
     Dosage: UNK UNK, UNK
     Dates: start: 201209, end: 2016
  8. NIFEDIPINE. [Suspect]
     Active Substance: NIFEDIPINE
     Dosage: UNK NON AZ PRODUCT
     Dates: start: 201609, end: 2016
  9. CLINDAMYCIN. [Suspect]
     Active Substance: CLINDAMYCIN
     Dosage: UNK UNK, UNK
     Dates: start: 201704, end: 2017
  10. NIFEDIPINE. [Suspect]
     Active Substance: NIFEDIPINE
     Dosage: UNK NON AZ PRODUCT
     Dates: start: 201203, end: 2012
  11. MIRTAZAPINE. [Suspect]
     Active Substance: MIRTAZAPINE
     Dosage: UNK UNK, UNK
     Dates: start: 201210, end: 2013
  12. IBUFLAM [IBUPROFEN] [Suspect]
     Active Substance: IBUPROFEN
     Dosage: UNK UNK, UNK
     Dates: start: 201704, end: 2017
  13. VALSARTAN. [Suspect]
     Active Substance: VALSARTAN
     Dosage: UNK
     Dates: start: 201807, end: 2018
  14. NIFEDIPINE. [Suspect]
     Active Substance: NIFEDIPINE
     Dosage: UNK NON AZ PRODUCT
     Dates: start: 201604, end: 2016
  15. NOVAMINSULFON [Suspect]
     Active Substance: METAMIZOLE
     Dosage: UNK UNK, UNK
     Dates: start: 201610, end: 2016
  16. AMLODIPINE [Suspect]
     Active Substance: AMLODIPINE BESYLATE
     Dosage: UNK NON AZ PRODUCT
     Dates: start: 201203, end: 2012
  17. RAMIPRIL. [Suspect]
     Active Substance: RAMIPRIL
     Dosage: UNK, UNK NON AZ PRODUCT
     Dates: start: 201606, end: 2016
  18. IBUFLAM [IBUPROFEN] [Suspect]
     Active Substance: IBUPROFEN
     Dosage: UNK
     Dates: start: 201211, end: 2012
  19. NITROLINGUAL [Suspect]
     Active Substance: NITROGLYCERIN
     Dosage: UNK UNK, UNK
     Dates: start: 201203, end: 2017
  20. VALSARTAN. [Suspect]
     Active Substance: VALSARTAN
     Indication: HYPERTENSION
     Dosage: UNK
     Dates: start: 201810
  21. VALSARTAN. [Suspect]
     Active Substance: VALSARTAN
     Dosage: UNK
     Dates: start: 201808
  22. VALSARTAN. [Suspect]
     Active Substance: VALSARTAN
     Dosage: UNK
     Dates: start: 201202, end: 2014
  23. BISOPROLOL [Suspect]
     Active Substance: BISOPROLOL
     Dosage: UNK
     Dates: start: 201203, end: 2018

REACTIONS (4)
  - Carotid artery disease [Unknown]
  - Chronic kidney disease [Unknown]
  - Normochromic anaemia [Unknown]
  - Hypertension [Unknown]

NARRATIVE: CASE EVENT DATE: 2018
